FAERS Safety Report 21391338 (Version 1)
Quarter: 2022Q3

REPORT INFORMATION
  Report Type: Spontaneous
  Country: US (occurrence: None)
  Receive Date: 20220927
  Receipt Date: 20220927
  Transmission Date: 20221027
  Serious: Yes (unspecified)
  Sender: FDA-Public Use
  Company Number: None

PATIENT
  Age: 40 Year
  Sex: Female

DRUGS (3)
  1. APIDRA [Suspect]
     Active Substance: INSULIN GLULISINE
  2. LANTUS [Suspect]
     Active Substance: INSULIN GLARGINE
     Dates: start: 20220802, end: 20220906
  3. APIDRA [Concomitant]
     Active Substance: INSULIN GLULISINE
     Dates: start: 20220817, end: 20220906

REACTIONS (8)
  - Confusional state [None]
  - Hyperinsulinaemic hypoglycaemia [None]
  - Incorrect product dosage form administered [None]
  - Product administration error [None]
  - Product appearance confusion [None]
  - Exposure during pregnancy [None]
  - Maternal condition affecting foetus [None]
  - Product dosage form confusion [None]

NARRATIVE: CASE EVENT DATE: 20220817
